FAERS Safety Report 6921005-2 (Version None)
Quarter: 2010Q3

REPORT INFORMATION
  Report Type: 
  Country: None (occurrence: None)
  Receive Date: 20100812
  Receipt Date: 20100804
  Transmission Date: 20110219
  Serious: Yes (Other)
  Sender: FDA-Public Use
  Company Number: DK-ROCHE-700836

PATIENT
  Age: 61 Year
  Sex: Female
  Weight: 68 kg

DRUGS (6)
  1. HERCEPTIN [Suspect]
     Route: 042
     Dates: start: 20090608
  2. HERCEPTIN [Suspect]
     Route: 042
     Dates: start: 20091012, end: 20091215
  3. HERCEPTIN [Suspect]
     Route: 042
     Dates: start: 20091215, end: 20100105
  4. LETROZOLE [Suspect]
     Dosage: FREQUENCY: DAILY
     Route: 048
     Dates: start: 20090608, end: 20090923
  5. IBUMETIN [Concomitant]
     Indication: BACK PAIN
  6. COAPROVEL [Concomitant]

REACTIONS (1)
  - NEPHROPATHY TOXIC [None]
